FAERS Safety Report 25354701 (Version 1)
Quarter: 2025Q2

REPORT INFORMATION
  Report Type: Report from Study
  Country: US (occurrence: US)
  Receive Date: 20250524
  Receipt Date: 20250524
  Transmission Date: 20250716
  Serious: Yes (Hospitalization)
  Sender: JAZZ
  Company Number: US-JAZZ PHARMACEUTICALS-2025-US-013086

PATIENT
  Sex: Female

DRUGS (1)
  1. EPIDIOLEX [Suspect]
     Active Substance: CANNABIDIOL
     Indication: Lennox-Gastaut syndrome
     Dosage: 4.5 MILLILITER, BID
     Route: 048
     Dates: start: 202209

REACTIONS (1)
  - Hospitalisation [Not Recovered/Not Resolved]
